FAERS Safety Report 6032152-4 (Version None)
Quarter: 2009Q1

REPORT INFORMATION
  Report Type: 
  Country: None (occurrence: None)
  Receive Date: 20090107
  Receipt Date: 20081223
  Transmission Date: 20090719
  Serious: Yes (Death)
  Sender: FDA-Public Use
  Company Number: 2008003197

PATIENT
  Age: 65 Year
  Sex: Male

DRUGS (4)
  1. ERLOTINIB (ERLOTINIB) (TABLET) (ERLOTINIB) [Suspect]
     Indication: COLORECTAL CANCER METASTATIC
     Dosage: 25 MG, ORAL
     Route: 048
     Dates: start: 20080908, end: 20081129
  2. CAPECITABINE (CAPECITABINE) [Concomitant]
     Dosage: 800 MG, QD D 1 TO 14, CONTINUOUSLY D 15 TO 21), ORAL
     Route: 048
     Dates: start: 20080908, end: 20081129
  3. OXALIPLATIN [Suspect]
     Dosage: 240 MG, Q3W, INTRAVENOUS
     Route: 042
     Dates: start: 20080908, end: 20081129
  4. CAPECITABINE (CAPECITABINE) [Suspect]

REACTIONS (5)
  - ABDOMINAL DISTENSION [None]
  - CARDIAC ARREST [None]
  - DIARRHOEA [None]
  - METABOLIC ACIDOSIS [None]
  - PNEUMONIA ASPIRATION [None]
